FAERS Safety Report 16328202 (Version 2)
Quarter: 2019Q2

REPORT INFORMATION
  Report Type: Spontaneous
  Country: CA (occurrence: CA)
  Receive Date: 20190518
  Receipt Date: 20190625
  Transmission Date: 20190711
  Serious: Yes (Hospitalization, Other)
  Sender: FDA-Public Use
  Company Number: CA-AUROBINDO-AUR-APL-2019-027687

PATIENT

DRUGS (11)
  1. RIVAROXABAN [Suspect]
     Active Substance: RIVAROXABAN
     Indication: ATRIAL FIBRILLATION
  2. BUPIVACAINE. [Concomitant]
     Active Substance: BUPIVACAINE
     Indication: ANAESTHESIA
     Dosage: UNK, SLOUTION BLOCK/INFILTRATION
     Route: 065
  3. EPINEPHRINE. [Concomitant]
     Active Substance: EPINEPHRINE
     Indication: ANAESTHESIA
     Dosage: UNK
     Route: 065
  4. RIVAROXABAN [Suspect]
     Active Substance: RIVAROXABAN
     Indication: PROPHYLAXIS
     Dosage: 15 MILLIGRAM, ONCE A DAY
     Route: 065
  5. RIVAROXABAN [Suspect]
     Active Substance: RIVAROXABAN
     Indication: CEREBROVASCULAR ACCIDENT
  6. ESCITALOPRAM [Suspect]
     Active Substance: ESCITALOPRAM OXALATE
     Indication: PRODUCT USED FOR UNKNOWN INDICATION
     Dosage: UNK
     Route: 065
  7. HEPARIN SODIUM. [Suspect]
     Active Substance: HEPARIN SODIUM
     Indication: PROPHYLAXIS
  8. HEPARIN SODIUM. [Suspect]
     Active Substance: HEPARIN SODIUM
     Indication: THROMBOSIS
  9. HYDROMORPHONE [Concomitant]
     Active Substance: HYDROMORPHONE
     Indication: ANAESTHESIA
     Dosage: UNK
     Route: 065
  10. HEPARIN SODIUM. [Suspect]
     Active Substance: HEPARIN SODIUM
     Indication: EMBOLISM VENOUS
     Dosage: 5000 INTERNATIONAL UNIT
     Route: 058
  11. LIDOCAINE. [Concomitant]
     Active Substance: LIDOCAINE
     Indication: ANAESTHESIA
     Dosage: 3 ML
     Route: 065

REACTIONS (11)
  - Paralysis [Recovered/Resolved with Sequelae]
  - Platelet aggregation inhibition [Recovered/Resolved]
  - Motor dysfunction [Recovering/Resolving]
  - Oedema [Unknown]
  - Spinal cord oedema [Recovering/Resolving]
  - Spinal cord compression [Recovering/Resolving]
  - Extradural haematoma [Recovered/Resolved]
  - Haemorrhage [Recovered/Resolved]
  - Platelet count decreased [Unknown]
  - Hypotension [Recovered/Resolved with Sequelae]
  - Hypovolaemia [Recovered/Resolved with Sequelae]
